FAERS Safety Report 13659520 (Version 1)
Quarter: 2017Q2

REPORT INFORMATION
  Report Type: Spontaneous
  Country: JP (occurrence: JP)
  Receive Date: 20170616
  Receipt Date: 20170616
  Transmission Date: 20170830
  Serious: Yes (Other)
  Sender: FDA-Public Use
  Company Number: JP-GLAXOSMITHKLINE-JP2017JPN056482

PATIENT
  Age: 18 Year
  Sex: Female

DRUGS (2)
  1. BEPIO [Concomitant]
     Indication: ACNE
     Dosage: UNK
     Dates: start: 20170330
  2. DUAC GEL [Suspect]
     Active Substance: BENZOYL PEROXIDE\CLINDAMYCIN PHOSPHATE
     Indication: ACNE
     Dosage: UNK
     Route: 050
     Dates: start: 20170414, end: 20170417

REACTIONS (4)
  - Dermatitis contact [Unknown]
  - Application site swelling [Unknown]
  - Pyrexia [Unknown]
  - Application site erythema [Unknown]

NARRATIVE: CASE EVENT DATE: 20170415
